FAERS Safety Report 18322735 (Version 1)
Quarter: 2020Q3

REPORT INFORMATION
  Report Type: Spontaneous
  Country: GB (occurrence: GB)
  Receive Date: 20200929
  Receipt Date: 20200929
  Transmission Date: 20201103
  Serious: Yes (Hospitalization, Disabling)
  Sender: FDA-Public Use
  Company Number: GB-AXELLIA-003381

PATIENT
  Age: 62 Year
  Sex: Female
  Weight: 120 kg

DRUGS (8)
  1. TIGECYCLINE. [Suspect]
     Active Substance: TIGECYCLINE
     Indication: ABDOMINAL SEPSIS
  2. VANCOMYCIN [Suspect]
     Active Substance: VANCOMYCIN
     Indication: ABDOMINAL SEPSIS
     Route: 042
     Dates: start: 20200823, end: 20200904
  3. ATENOLOL. [Concomitant]
     Active Substance: ATENOLOL
  4. ATORVASTATIN CALCIUM. [Concomitant]
     Active Substance: ATORVASTATIN CALCIUM
  5. AMLODIPINE MALEATE [Concomitant]
     Active Substance: AMLODIPINE MALEATE
  6. CITALOPRAM HYDROBROMIDE. [Concomitant]
     Active Substance: CITALOPRAM HYDROBROMIDE
  7. MEROPENEM. [Suspect]
     Active Substance: MEROPENEM
     Indication: ABDOMINAL SEPSIS
  8. RAMIPRIL. [Concomitant]
     Active Substance: RAMIPRIL

REACTIONS (1)
  - Pyrexia [Recovered/Resolved with Sequelae]
